FAERS Safety Report 10144333 (Version 1)
Quarter: 2014Q2

REPORT INFORMATION
  Report Type: Spontaneous
  Country: FR (occurrence: FR)
  Receive Date: 20140430
  Receipt Date: 20140430
  Transmission Date: 20141212
  Serious: Yes (Other)
  Sender: FDA-Public Use
  Company Number: FR-ROXANE LABORATORIES, INC.-2014-RO-00669RO

PATIENT
  Age: 35 Year
  Sex: Male

DRUGS (4)
  1. QUETIAPINE FUMARATE [Suspect]
     Indication: SCHIZOAFFECTIVE DISORDER
     Dosage: 600 MG
     Route: 065
  2. LITHIUM CARBONATE [Suspect]
     Indication: SCHIZOAFFECTIVE DISORDER
     Dosage: 800 MG
     Route: 065
  3. RISPERIDONE [Suspect]
     Indication: SCHIZOAFFECTIVE DISORDER
     Route: 065
  4. ZUCLOPENTHIXOL [Suspect]
     Indication: SCHIZOAFFECTIVE DISORDER
     Dosage: 100 MG
     Route: 065

REACTIONS (3)
  - Agitation [Recovered/Resolved]
  - Aggression [Recovered/Resolved]
  - Sexual dysfunction [Unknown]
